FAERS Safety Report 6558871-9 (Version None)
Quarter: 2010Q1

REPORT INFORMATION
  Report Type: 
  Country: None (occurrence: None)
  Receive Date: 20100129
  Receipt Date: 20100119
  Transmission Date: 20100710
  Serious: Yes (Other)
  Sender: FDA-Public Use
  Company Number: US-PFIZER INC-2010010447

PATIENT
  Sex: Female

DRUGS (3)
  1. ALPRAZOLAM [Suspect]
     Indication: ANXIETY
     Dates: start: 20030101, end: 20091101
  2. ALPRAZOLAM [Suspect]
     Dosage: 1 MG, 3X/DAY
     Dates: start: 20091101
  3. SEROQUEL [Suspect]

REACTIONS (6)
  - CORONARY ARTERY OCCLUSION [None]
  - DRUG INEFFECTIVE [None]
  - DRY MOUTH [None]
  - HYPOAESTHESIA [None]
  - NAUSEA [None]
  - WEIGHT INCREASED [None]
